FAERS Safety Report 7621968-6 (Version None)
Quarter: 2011Q3

REPORT INFORMATION
  Report Type: 
  Country: None (occurrence: None)
  Receive Date: 20110720
  Receipt Date: 20110525
  Transmission Date: 20111222
  Serious: Yes (Other)
  Sender: FDA-Public Use
  Company Number: CN-BAYER-2011-044492

PATIENT
  Sex: Female

DRUGS (1)
  1. CLOTRIMAZOLE [Suspect]
     Indication: VULVOVAGINAL PRURITUS
     Dosage: 1 DF, ONCE
     Route: 067
     Dates: start: 20110521

REACTIONS (5)
  - DYSPNOEA [None]
  - PRURITUS GENERALISED [None]
  - GENERALISED ERYTHEMA [None]
  - CHEST DISCOMFORT [None]
  - HYPERSENSITIVITY [None]
